FAERS Safety Report 24353545 (Version 4)
Quarter: 2024Q4

REPORT INFORMATION
  Report Type: Spontaneous
  Country: US (occurrence: US)
  Receive Date: 20240923
  Receipt Date: 20241220
  Transmission Date: 20250114
  Serious: Yes (Other)
  Sender: PFIZER
  Company Number: US-PFIZER INC-PV202400123115

PATIENT
  Age: 70 Year
  Sex: Female

DRUGS (3)
  1. TUKYSA [Suspect]
     Active Substance: TUCATINIB
     Dosage: 150 MG
  2. TUKYSA [Suspect]
     Active Substance: TUCATINIB
     Dosage: 150MG; 2 TABLETS TWICE DAILY/300MG TWICE A DAY
     Route: 048
  3. TUKYSA [Suspect]
     Active Substance: TUCATINIB
     Dosage: 50MG, 3 TABLETS EVERY 12 HOURS/50MG THREE TABLETS TWICE A DAY, 150MG TOTAL

REACTIONS (9)
  - Spinal fracture [Unknown]
  - Neoplasm progression [Unknown]
  - COVID-19 [Unknown]
  - Respiratory syncytial virus infection [Unknown]
  - Malaise [Unknown]
  - Nausea [Unknown]
  - Decreased immune responsiveness [Unknown]
  - Illness [Unknown]
  - Pyrexia [Unknown]

NARRATIVE: CASE EVENT DATE: 20241215
